FAERS Safety Report 5006003-0 (Version None)
Quarter: 2006Q2

REPORT INFORMATION
  Report Type: 
  Country: None (occurrence: None)
  Receive Date: 20060517
  Receipt Date: 20060517
  Transmission Date: 20061013
  Serious: No
  Sender: FDA-Public Use
  Company Number: None

PATIENT
  Sex: Male
  Weight: 70.3075 kg

DRUGS (4)
  1. CIPRO [Suspect]
     Indication: BRONCHITIS
     Dosage: PO
     Route: 048
  2. CIPRO XR [Suspect]
     Indication: BRONCHITIS
     Dosage: ONE DAILY PO
     Route: 048
  3. CIPRO [Concomitant]
  4. CIPRO XR [Concomitant]

REACTIONS (21)
  - ANGIONEUROTIC OEDEMA [None]
  - ARTHRALGIA [None]
  - BACK PAIN [None]
  - CARDIOVASCULAR DISORDER [None]
  - CONDITION AGGRAVATED [None]
  - DEAFNESS [None]
  - DYSKINESIA [None]
  - ERYTHEMA MULTIFORME [None]
  - GAIT DISTURBANCE [None]
  - GASTROOESOPHAGEAL REFLUX DISEASE [None]
  - INSOMNIA [None]
  - MIGRAINE [None]
  - MUSCLE SPASMS [None]
  - MYALGIA [None]
  - ONYCHOCLASIS [None]
  - PANIC ATTACK [None]
  - RECTAL HAEMORRHAGE [None]
  - SUICIDE ATTEMPT [None]
  - TENDON RUPTURE [None]
  - TENDONITIS [None]
  - VASCULITIC RASH [None]
